FAERS Safety Report 10930176 (Version 1)
Quarter: 2015Q1

REPORT INFORMATION
  Report Type: Report from Study
  Country: BR (occurrence: BR)
  Receive Date: 20150319
  Receipt Date: 20150319
  Transmission Date: 20150721
  Serious: Yes (Hospitalization, Other)
  Sender: FDA-Public Use
  Company Number: BR-ABBVIE-15K-020-1360867-00

PATIENT
  Age: 47 Year
  Sex: Female
  Weight: 95 kg

DRUGS (12)
  1. HUMIRA [Suspect]
     Active Substance: ADALIMUMAB
     Indication: RHEUMATOID ARTHRITIS
     Route: 058
     Dates: start: 20130101
  2. MILGAMMA [Concomitant]
     Active Substance: VITAMIN B
     Indication: PAIN
     Route: 048
     Dates: start: 2014
  3. BUDECORT [Concomitant]
     Active Substance: BUDESONIDE
     Indication: ASTHMA
     Route: 055
     Dates: start: 2012
  4. EUTHYROX [Concomitant]
     Active Substance: LEVOTHYROXINE SODIUM
     Indication: HYPOTHYROIDISM
     Route: 048
     Dates: start: 2009
  5. LOSARTAN [Concomitant]
     Active Substance: LOSARTAN
     Indication: DIURETIC THERAPY
     Route: 048
     Dates: start: 2012
  6. AEROTIDE [Concomitant]
     Indication: ASTHMA
     Route: 055
  7. RIVOTRIL [Concomitant]
     Active Substance: CLONAZEPAM
     Indication: PAIN
     Route: 048
     Dates: start: 2012
  8. ALENIA [Concomitant]
     Active Substance: BUDESONIDE\FORMOTEROL FUMARATE
     Indication: ASTHMA
  9. EFFEXOR [Concomitant]
     Active Substance: VENLAFAXINE HYDROCHLORIDE
     Indication: PAIN
     Route: 048
     Dates: start: 2009
  10. LYRICA [Concomitant]
     Active Substance: PREGABALIN
     Indication: PAIN
     Route: 048
     Dates: start: 2010
  11. METHADONE [Concomitant]
     Active Substance: METHADONE HYDROCHLORIDE
     Indication: PAIN
     Route: 048
     Dates: start: 2014
  12. RIVOTRIL [Concomitant]
     Active Substance: CLONAZEPAM
     Indication: SLEEP DISORDER THERAPY

REACTIONS (8)
  - Oesophagitis [Unknown]
  - Cardiovascular disorder [Unknown]
  - Nervousness [Unknown]
  - Injection site pain [Not Recovered/Not Resolved]
  - Dyspnoea [Unknown]
  - Peripheral venous disease [Recovering/Resolving]
  - Injection site warmth [Unknown]
  - Gastritis erosive [Recovering/Resolving]

NARRATIVE: CASE EVENT DATE: 201410
